FAERS Safety Report 15494373 (Version 2)
Quarter: 2018Q4

REPORT INFORMATION
  Report Type: Spontaneous
  Country: IT (occurrence: IT)
  Receive Date: 20181012
  Receipt Date: 20181016
  Transmission Date: 20190205
  Serious: Yes (Hospitalization)
  Sender: FDA-Public Use
  Company Number: IT-ALLERGAN-1849104US

PATIENT
  Age: 35 Year
  Sex: Female

DRUGS (1)
  1. FOSFOMYCIN TROMETHAMINE - BP [Suspect]
     Active Substance: FOSFOMYCIN TROMETHAMINE
     Indication: HAEMATURIA
     Dosage: 3 G, DAILY
     Route: 048
     Dates: start: 20180928, end: 20180929

REACTIONS (4)
  - Nausea [Recovering/Resolving]
  - Vomiting [Recovering/Resolving]
  - Paraesthesia oral [Recovering/Resolving]
  - Dyspnoea [Recovering/Resolving]

NARRATIVE: CASE EVENT DATE: 20180929
